FAERS Safety Report 10663439 (Version 4)
Quarter: 2017Q1

REPORT INFORMATION
  Report Type: Spontaneous
  Country: CA (occurrence: CA)
  Receive Date: 20141218
  Receipt Date: 20170302
  Transmission Date: 20170428
  Serious: Yes (Other)
  Sender: FDA-Public Use
  Company Number: CA-ROCHE-1510504

PATIENT
  Age: 32 Year
  Sex: Female

DRUGS (1)
  1. XOLAIR [Suspect]
     Active Substance: OMALIZUMAB
     Indication: ASTHMA
     Route: 058
     Dates: start: 20140324

REACTIONS (9)
  - Pneumonia [Unknown]
  - Asthma [Unknown]
  - Forced expiratory volume decreased [Unknown]
  - Influenza [Unknown]
  - Middle insomnia [Unknown]
  - Pyrexia [Unknown]
  - Nasopharyngitis [Unknown]
  - Nausea [Unknown]
  - Dyspnoea [Unknown]

NARRATIVE: CASE EVENT DATE: 201409
